FAERS Safety Report 25298647 (Version 1)
Quarter: 2025Q2

REPORT INFORMATION
  Report Type: Spontaneous
  Country: US (occurrence: US)
  Receive Date: 20250512
  Receipt Date: 20250512
  Transmission Date: 20250716
  Serious: No
  Sender: GLAXOSMITHKLINE
  Company Number: US-GSK-US2025053813

PATIENT
  Sex: Male

DRUGS (5)
  1. TRELEGY ELLIPTA [Suspect]
     Active Substance: FLUTICASONE FUROATE\UMECLIDINIUM BROMIDE\VILANTEROL TRIFENATATE
     Indication: Chronic obstructive pulmonary disease
     Dosage: 1 PUFF(S), QD,100/62.5/25 MCG
     Route: 055
     Dates: start: 2022
  2. ATENOLOL [Concomitant]
     Active Substance: ATENOLOL
     Indication: Product used for unknown indication
     Dosage: 50 MG, QD
  3. ELIQUIS [Concomitant]
     Active Substance: APIXABAN
     Indication: Heart rate irregular
     Dosage: 5 MG, QD
  4. LEVOTHYROXINE [Concomitant]
     Active Substance: LEVOTHYROXINE
     Indication: Hypothyroidism
     Dosage: 50 MG, QD
  5. D VIT [Concomitant]
     Indication: Product used for unknown indication
     Dosage: 1 DF, Q3W

REACTIONS (2)
  - Oral candidiasis [Not Recovered/Not Resolved]
  - Stomatitis [Not Recovered/Not Resolved]
